FAERS Safety Report 8185376-4 (Version None)
Quarter: 2012Q1

REPORT INFORMATION
  Report Type: 
  Country: None (occurrence: None)
  Receive Date: 20120305
  Receipt Date: 20120223
  Transmission Date: 20120608
  Serious: Yes (Other)
  Sender: FDA-Public Use
  Company Number: AU-ROCHE-1045253

PATIENT
  Sex: Female

DRUGS (1)
  1. LUCENTIS [Suspect]
     Indication: AGE-RELATED MACULAR DEGENERATION
     Route: 050
     Dates: start: 20110101

REACTIONS (5)
  - DECREASED APPETITE [None]
  - ABDOMINAL DISCOMFORT [None]
  - ROTATOR CUFF SYNDROME [None]
  - MALAISE [None]
  - GAIT DISTURBANCE [None]
